FAERS Safety Report 20950420 (Version 1)
Quarter: 2022Q2

REPORT INFORMATION
  Report Type: Spontaneous
  Country: US (occurrence: None)
  Receive Date: 20220612
  Receipt Date: 20220612
  Transmission Date: 20220720
  Serious: No
  Sender: FDA-Public Use
  Company Number: None

PATIENT
  Age: 57 Year
  Sex: Female
  Weight: 63 kg

DRUGS (5)
  1. PAXLOVID [Suspect]
     Active Substance: NIRMATRELVIR\RITONAVIR
     Indication: COVID-19
     Dates: start: 20220602, end: 20220607
  2. LEVOTHYROXINE [Concomitant]
  3. BUPROPION [Concomitant]
     Active Substance: BUPROPION
  4. MONTELUKAST [Concomitant]
     Active Substance: MONTELUKAST SODIUM
  5. CETIRIZINE [Concomitant]
     Active Substance: CETIRIZINE HYDROCHLORIDE

REACTIONS (10)
  - Malaise [None]
  - SARS-CoV-2 test positive [None]
  - Chest discomfort [None]
  - Cough [None]
  - Secretion discharge [None]
  - Oropharyngeal pain [None]
  - Nasal congestion [None]
  - Headache [None]
  - Fatigue [None]
  - Body temperature increased [None]

NARRATIVE: CASE EVENT DATE: 20220608
